FAERS Safety Report 16136425 (Version 3)
Quarter: 2019Q3

REPORT INFORMATION
  Report Type: Report from Study
  Country: KR (occurrence: KR)
  Receive Date: 20190331
  Receipt Date: 20190926
  Transmission Date: 20191004
  Serious: Yes (Hospitalization)
  Sender: FDA-Public Use
  Company Number: KR-INCYTE CORPORATION-2019IN002994

PATIENT

DRUGS (3)
  1. JAKAVI [Suspect]
     Active Substance: RUXOLITINIB
     Indication: MYELOFIBROSIS
     Dosage: 20 MG, BID
     Route: 048
     Dates: start: 20190110
  2. PLAVIX [Concomitant]
     Active Substance: CLOPIDOGREL BISULFATE
     Indication: CEREBROVASCULAR ACCIDENT
     Dosage: 75 MG, 1 T QD
     Route: 065
     Dates: start: 201210, end: 20190130
  3. WARFARIN [Concomitant]
     Active Substance: WARFARIN
     Indication: CEREBROVASCULAR ACCIDENT
     Dosage: 4 MG, QD
     Route: 048
     Dates: start: 201210, end: 20190130

REACTIONS (13)
  - Pain [Unknown]
  - Herpes zoster [Recovering/Resolving]
  - Asthenia [Recovering/Resolving]
  - Retroperitoneal haematoma [Recovering/Resolving]
  - Mononeuropathy [Unknown]
  - Sensory loss [Recovering/Resolving]
  - Peripheral ischaemia [Recovering/Resolving]
  - Back pain [Recovering/Resolving]
  - Embolism arterial [Recovering/Resolving]
  - Muscular weakness [Unknown]
  - Blood pressure decreased [Recovering/Resolving]
  - Flank pain [Recovering/Resolving]
  - Hypoaesthesia [Unknown]

NARRATIVE: CASE EVENT DATE: 20190130
